FAERS Safety Report 4470738-9 (Version None)
Quarter: 2004Q4

REPORT INFORMATION
  Report Type: 
  Country: None (occurrence: None)
  Receive Date: 20041006
  Receipt Date: 20040923
  Transmission Date: 20050328
  Serious: Yes (Other)
  Sender: FDA-Public Use
  Company Number: SUSI-2004-00621

PATIENT
  Sex: Female

DRUGS (1)
  1. PENTASA [Suspect]
     Indication: CROHN'S DISEASE

REACTIONS (2)
  - PULMONARY FIBROSIS [None]
  - PULMONARY GRANULOMA [None]
